FAERS Safety Report 24869726 (Version 1)
Quarter: 2025Q1

REPORT INFORMATION
  Report Type: Spontaneous
  Country: US (occurrence: US)
  Receive Date: 20250121
  Receipt Date: 20250121
  Transmission Date: 20250408
  Serious: Yes (Hospitalization)
  Sender: AMGEN
  Company Number: US-AMGEN-USASP2025010496

PATIENT
  Sex: Male

DRUGS (9)
  1. PROCYSBI [Suspect]
     Active Substance: CYSTEAMINE BITARTRATE
     Indication: Cystinosis
     Dosage: 900 MILLIGRAM, Q12H, (12 CAPSULES)
     Route: 065
  2. SYNTHROID [Concomitant]
     Active Substance: LEVOTHYROXINE SODIUM
  3. SYSTANE (HYPROMELLOSE 2910 (4000 MPA.S)) [Concomitant]
     Active Substance: HYPROMELLOSE 2910 (4000 MPA.S)
  4. LIPITOR [Concomitant]
     Active Substance: ATORVASTATIN CALCIUM
  5. TUMS [Concomitant]
     Active Substance: CALCIUM CARBONATE
  6. PROGRAF [Concomitant]
     Active Substance: TACROLIMUS
  7. ASPIRIN [Concomitant]
     Active Substance: ASPIRIN
  8. KEPPRA [Concomitant]
     Active Substance: LEVETIRACETAM
  9. VITAMINS [Concomitant]
     Active Substance: VITAMINS

REACTIONS (1)
  - Vomiting [Recovered/Resolved]
